FAERS Safety Report 8991266 (Version 1)
Quarter: 2012Q4

REPORT INFORMATION
  Report Type: Report from Study
  Country: CA (occurrence: CA)
  Receive Date: 20121231
  Receipt Date: 20121231
  Transmission Date: 20130627
  Serious: Yes (Other)
  Sender: FDA-Public Use
  Company Number: CA-ROCHE-1170621

PATIENT
  Age: 42 Year
  Sex: Male
  Weight: 85.9 kg

DRUGS (9)
  1. OMALIZUMAB [Suspect]
     Indication: ASTHMA
     Route: 065
     Dates: start: 20050930
  2. OMALIZUMAB [Suspect]
     Route: 065
     Dates: start: 20051022
  3. OMALIZUMAB [Suspect]
     Route: 065
     Dates: start: 20060726
  4. OMALIZUMAB [Suspect]
     Route: 065
     Dates: start: 20060812
  5. OMALIZUMAB [Suspect]
     Route: 065
     Dates: start: 20060826
  6. OMALIZUMAB [Suspect]
     Route: 065
     Dates: start: 20061021
  7. ADVAIR [Concomitant]
     Indication: PRODUCT USED FOR UNKNOWN INDICATION
  8. VENTOLIN [Concomitant]
     Indication: PRODUCT USED FOR UNKNOWN INDICATION
  9. IBUPROFEN [Concomitant]

REACTIONS (26)
  - Haemoptysis [Not Recovered/Not Resolved]
  - Cough [Unknown]
  - Chest discomfort [Unknown]
  - Wheezing [Not Recovered/Not Resolved]
  - Pulmonary congestion [Unknown]
  - Cough [Unknown]
  - Hypersensitivity [Unknown]
  - Chest discomfort [Not Recovered/Not Resolved]
  - Pulmonary congestion [Unknown]
  - Anosmia [Recovered/Resolved]
  - Hypersensitivity [Unknown]
  - Asthenia [Unknown]
  - Sinus congestion [Unknown]
  - Increased upper airway secretion [Unknown]
  - Nasal congestion [Unknown]
  - Sinusitis [Unknown]
  - Lacrimation increased [Unknown]
  - Dysphagia [Unknown]
  - Influenza like illness [Recovered/Resolved]
  - Rash erythematous [Recovering/Resolving]
  - Asthma [Unknown]
  - Dyspnoea [Unknown]
  - Wheezing [Unknown]
  - Dizziness [Unknown]
  - Fatigue [Unknown]
  - Drug ineffective [Unknown]
